FAERS Safety Report 24232955 (Version 1)
Quarter: 2024Q3

REPORT INFORMATION
  Report Type: Spontaneous
  Country: US (occurrence: None)
  Receive Date: 20240820
  Receipt Date: 20240820
  Transmission Date: 20241017
  Serious: Yes (Death)
  Sender: Public
  Company Number: None

PATIENT
  Age: 68 Year
  Sex: Male

DRUGS (1)
  1. PIRFENIDONE [Suspect]
     Active Substance: PIRFENIDONE
     Indication: Interstitial lung disease
     Dosage: 267MG TID ORAL
     Route: 048
     Dates: start: 20230125, end: 20240811

REACTIONS (9)
  - Acute respiratory failure [None]
  - Sepsis [None]
  - Pancreatitis [None]
  - Cardiac failure congestive [None]
  - COVID-19 pneumonia [None]
  - Pneumonia pseudomonal [None]
  - Atrial fibrillation [None]
  - Shock [None]
  - General physical health deterioration [None]

NARRATIVE: CASE EVENT DATE: 20240811
